FAERS Safety Report 5325860-1 (Version None)
Quarter: 2007Q2

REPORT INFORMATION
  Report Type: 
  Country: None (occurrence: None)
  Receive Date: 20070510
  Receipt Date: 20070504
  Transmission Date: 20071010
  Serious: Yes (Death, Hospitalization)
  Sender: FDA-Public Use
  Company Number: A001-412-3888

PATIENT
  Age: 88 Year
  Sex: Male
  Weight: 85.9 kg

DRUGS (16)
  1. DONEPEZIL HCL [Suspect]
     Indication: COGNITIVE DISORDER
     Dosage: 5 MG, 1 IN 1 D, ORAL
     Route: 048
     Dates: start: 20041116, end: 20050102
  2. ZOCOR [Concomitant]
  3. METOPROLOL TARTRATE [Concomitant]
  4. HYDROCHLOROTHIAZIDE [Concomitant]
  5. CALCIUM(CALCIUM) [Concomitant]
  6. PROTONIX [Concomitant]
  7. LISINOPRIL [Concomitant]
  8. FERROUS SULFATE TAB [Concomitant]
  9. FISH OIL (FISH OIL) [Concomitant]
  10. AMBIEN [Concomitant]
  11. AMBIEN [Concomitant]
  12. ASPIRIN [Concomitant]
  13. PERSANTINE [Concomitant]
  14. ACETAMINOPHEN [Concomitant]
  15. ROCEPHIN [Concomitant]
  16. NITROGLYCERIN [Concomitant]

REACTIONS (4)
  - COUGH [None]
  - DYSPNOEA EXERTIONAL [None]
  - LUNG NEOPLASM MALIGNANT [None]
  - PNEUMONIA [None]
